FAERS Safety Report 7746230-2 (Version None)
Quarter: 2011Q3

REPORT INFORMATION
  Report Type: 
  Country: None (occurrence: None)
  Receive Date: 20110913
  Receipt Date: 20110909
  Transmission Date: 20111222
  Serious: Yes (Death, Hospitalization)
  Sender: FDA-Public Use
  Company Number: GB-BRISTOL-MYERS SQUIBB COMPANY-16008179

PATIENT
  Age: 63 Year
  Sex: Female

DRUGS (12)
  1. CALCIUM CARBONATE [Concomitant]
  2. MARAVIROC [Concomitant]
  3. RALTEGRAVIR POTASSIUM [Concomitant]
  4. ASPIRIN [Concomitant]
  5. METFORMIN HCL [Concomitant]
  6. PRAVASTATIN [Concomitant]
  7. REYATAZ [Suspect]
     Indication: HIV INFECTION
  8. FERROUS SULFATE TAB [Concomitant]
  9. RITONAVIR [Suspect]
     Indication: HIV INFECTION
  10. COMBIVIR [Suspect]
     Indication: HIV INFECTION
     Dates: start: 20051201
  11. LAMOTRIGINE [Concomitant]
  12. NEVIRAPINE [Suspect]
     Indication: HIV INFECTION
     Dates: start: 20051201

REACTIONS (1)
  - HEPATIC STEATOSIS [None]
